FAERS Safety Report 5801677-6 (Version None)
Quarter: 2008Q3

REPORT INFORMATION
  Report Type: 
  Country: None (occurrence: None)
  Receive Date: 20080703
  Receipt Date: 20080703
  Transmission Date: 20090109
  Serious: Yes (Other)
  Sender: FDA-Public Use
  Company Number: None

PATIENT
  Sex: Female
  Weight: 88.4514 kg

DRUGS (1)
  1. PAXIL [Suspect]
     Indication: DEPRESSION
     Dosage: 10MG DAILY
     Dates: start: 19960101

REACTIONS (14)
  - BLOOD PRESSURE INCREASED [None]
  - DIARRHOEA [None]
  - DRUG DEPENDENCE [None]
  - DRUG WITHDRAWAL SYNDROME [None]
  - FEELING ABNORMAL [None]
  - HALLUCINATION [None]
  - INFLUENZA [None]
  - MIGRAINE [None]
  - MUSCLE CONTRACTIONS INVOLUNTARY [None]
  - NAUSEA [None]
  - PARAESTHESIA [None]
  - TINNITUS [None]
  - VOMITING [None]
  - WEIGHT DECREASED [None]
